FAERS Safety Report 4600391-2 (Version None)
Quarter: 2005Q1

REPORT INFORMATION
  Report Type: 
  Country: None (occurrence: None)
  Receive Date: 20050304
  Receipt Date: 20050218
  Transmission Date: 20050727
  Serious: Yes (Hospitalization)
  Sender: FDA-Public Use
  Company Number: CERZ-10800

PATIENT
  Age: 41 Year
  Sex: Male
  Weight: 136.0791 kg

DRUGS (1)
  1. CEREZYME [Suspect]
     Indication: GAUCHER'S DISEASE
     Dosage: 3500 UNITS Q4WKS IV
     Route: 042
     Dates: start: 19960101

REACTIONS (1)
  - OBESITY [None]
